FAERS Safety Report 5714520-0 (Version None)
Quarter: 2008Q2

REPORT INFORMATION
  Report Type: 
  Country: None (occurrence: None)
  Receive Date: 20080423
  Receipt Date: 20071012
  Transmission Date: 20081010
  Serious: Yes (Other)
  Sender: FDA-Public Use
  Company Number: CA-ASTRAZENECA-2007UW05141

PATIENT
  Sex: Male

DRUGS (1)
  1. SEROQUEL [Suspect]
     Indication: SCHIZOPHRENIA
     Route: 048

REACTIONS (12)
  - BOWEL MOVEMENT IRREGULARITY [None]
  - DEPRESSION [None]
  - DIABETES MELLITUS [None]
  - ENURESIS [None]
  - FEELING ABNORMAL [None]
  - GASTROINTESTINAL MOTILITY DISORDER [None]
  - HYPERHIDROSIS [None]
  - PANCREATITIS [None]
  - PARANOIA [None]
  - SEXUAL DYSFUNCTION [None]
  - SUICIDE ATTEMPT [None]
  - URINARY INCONTINENCE [None]
